FAERS Safety Report 9190387 (Version 1)
Quarter: 2013Q1

REPORT INFORMATION
  Report Type: Spontaneous
  Country: US (occurrence: US)
  Receive Date: 20130326
  Receipt Date: 20130326
  Transmission Date: 20140127
  Serious: Yes (Other)
  Sender: FDA-Public Use
  Company Number: US-FRI-1000043632

PATIENT
  Age: 43 Year
  Sex: Female
  Weight: 84.5 kg

DRUGS (1)
  1. VIIBRYD [Suspect]
     Dosage: 40 MG

REACTIONS (1)
  - Hypersensitivity [Recovered/Resolved]
